FAERS Safety Report 10621865 (Version 1)
Quarter: 2014Q4

REPORT INFORMATION
  Report Type: Spontaneous
  Country: US (occurrence: None)
  Receive Date: 20141201
  Receipt Date: 20141201
  Transmission Date: 20150529
  Serious: Yes (Life-Threatening)
  Sender: FDA-Public Use
  Company Number: None

PATIENT
  Age: 62 Year
  Sex: Male
  Weight: 81.65 kg

DRUGS (1)
  1. TRAMADOL [Suspect]
     Active Substance: TRAMADOL
     Indication: SMALL FIBRE NEUROPATHY
     Route: 048
     Dates: start: 20140108, end: 20141114

REACTIONS (6)
  - Head discomfort [None]
  - Burning sensation [None]
  - Pain [None]
  - Drug ineffective [None]
  - Insomnia [None]
  - Agitation [None]

NARRATIVE: CASE EVENT DATE: 20140115
